FAERS Safety Report 8421540-4 (Version None)
Quarter: 2012Q2

REPORT INFORMATION
  Report Type: 
  Country: None (occurrence: None)
  Receive Date: 20120601
  Receipt Date: 20120523
  Transmission Date: 20120825
  Serious: Yes (Hospitalization)
  Sender: FDA-Public Use
  Company Number: 2010JP003917

PATIENT
  Age: 40 Year
  Weight: 73.5 kg

DRUGS (10)
  1. FOSAMAX [Concomitant]
  2. PREDNISOLONE [Concomitant]
  3. LOXONIN  (LOXOPROFEN SODIUM) [Concomitant]
  4. HALCION [Concomitant]
  5. OMEPRAZOLE [Concomitant]
  6. NEUROVITAN  (OCTOTIAMINE, PYRIDOXINE HYDROCHLORIDE, CYANOCOBALAMIN, RI [Concomitant]
  7. TACROLIMUS [Suspect]
     Indication: LUPUS NEPHRITIS
     Dosage: 2 MG, /D, ORAL, 1 MG, /D, ORAL
     Route: 048
     Dates: start: 20090518, end: 20090628
  8. TACROLIMUS [Suspect]
     Indication: LUPUS NEPHRITIS
     Dosage: 2 MG, /D, ORAL, 1 MG, /D, ORAL
     Route: 048
     Dates: start: 20100809
  9. TACROLIMUS [Suspect]
     Indication: LUPUS NEPHRITIS
     Dosage: 2 MG, /D, ORAL, 1 MG, /D, ORAL
     Route: 048
     Dates: start: 20090629, end: 20100411
  10. ALFAROL  (ALFACALCIDOL) [Concomitant]

REACTIONS (4)
  - ENDOMETRIAL HYPERPLASIA [None]
  - MALAISE [None]
  - ANXIETY DISORDER [None]
  - CONDITION AGGRAVATED [None]
